FAERS Safety Report 7919762-1 (Version None)
Quarter: 2011Q4

REPORT INFORMATION
  Report Type: 
  Country: None (occurrence: None)
  Receive Date: 20111115
  Receipt Date: 20111103
  Transmission Date: 20120403
  Serious: Yes (Other)
  Sender: FDA-Public Use
  Company Number: 2011SP051784

PATIENT
  Sex: Female

DRUGS (1)
  1. PEGATRON (PEGYLATED INTERFERON ALFA-2B W/RIBAVIRIN) [Suspect]
     Indication: PRODUCT USED FOR UNKNOWN INDICATION
     Dates: start: 20110628

REACTIONS (12)
  - ENDOMETRIOSIS [None]
  - CONDITION AGGRAVATED [None]
  - MUSCLE SPASMS [None]
  - FATIGUE [None]
  - VAGINAL HAEMORRHAGE [None]
  - HOT FLUSH [None]
  - MOOD ALTERED [None]
  - HEADACHE [None]
  - CHILLS [None]
  - TOOTH INFECTION [None]
  - MALAISE [None]
  - INFLUENZA LIKE ILLNESS [None]
